FAERS Safety Report 13676446 (Version 1)
Quarter: 2017Q2

REPORT INFORMATION
  Report Type: Spontaneous
  Country: KE (occurrence: KE)
  Receive Date: 20170622
  Receipt Date: 20170622
  Transmission Date: 20170830
  Serious: Yes (Other)
  Sender: FDA-Public Use
  Company Number: KE-ASTRAZENECA-2017SE62797

PATIENT
  Sex: Male

DRUGS (1)
  1. NEXIUM [Suspect]
     Active Substance: ESOMEPRAZOLE MAGNESIUM
     Indication: HYPERCHLORHYDRIA
     Route: 048

REACTIONS (6)
  - Bone density abnormal [Unknown]
  - Gastrointestinal infection [Unknown]
  - Bone disorder [Unknown]
  - Skin disorder [Unknown]
  - Weight decreased [Unknown]
  - General physical health deterioration [Unknown]
